FAERS Safety Report 18607101 (Version 3)
Quarter: 2021Q4

REPORT INFORMATION
  Report Type: Spontaneous
  Country: US (occurrence: US)
  Receive Date: 20201211
  Receipt Date: 20211101
  Transmission Date: 20220303
  Serious: No
  Sender: FDA-Public Use
  Company Number: US-PFIZER INC-2020485526

PATIENT
  Age: 80 Year
  Sex: Female

DRUGS (2)
  1. SUTENT [Suspect]
     Active Substance: SUNITINIB MALATE
     Dosage: 25 MG
  2. SUTENT [Suspect]
     Active Substance: SUNITINIB MALATE
     Dosage: 50 MG, CYCLIC (1 CAPSULE BY MOUTH DAILY FOR 14 DAYS FOLLOWED BY 7DAYS OFF THEN REPEAT)
     Route: 048

REACTIONS (2)
  - Memory impairment [Unknown]
  - Hypoacusis [Unknown]
